FAERS Safety Report 7715196-3 (Version None)
Quarter: 2011Q3

REPORT INFORMATION
  Report Type: 
  Country: None (occurrence: None)
  Receive Date: 20110829
  Receipt Date: 20110822
  Transmission Date: 20111222
  Serious: Yes (Hospitalization)
  Sender: FDA-Public Use
  Company Number: PHHY2011CO75369

PATIENT
  Age: 83 Year
  Sex: Male

DRUGS (6)
  1. ZOLEDRONOC ACID [Suspect]
     Dosage: 5 MG, UNK (PER YEAR)
     Route: 042
     Dates: start: 20110301
  2. CALCIUM CARBONATE [Concomitant]
     Dosage: UNK UKN, UNK
  3. ACETAMINOPHEN [Concomitant]
     Dosage: UNK UKN, UNK
  4. ANTIBIOTICS [Concomitant]
     Dosage: UNK UKN, UNK
  5. ANALGESICS [Concomitant]
     Dosage: UNK UKN, UNK
  6. ENALAPRIL MALEATE [Concomitant]
     Dosage: UNK UKN, UNK

REACTIONS (2)
  - FALL [None]
  - HIP FRACTURE [None]
